FAERS Safety Report 9494103 (Version 1)
Quarter: 2013Q3

REPORT INFORMATION
  Report Type: Spontaneous
  Country: US (occurrence: None)
  Receive Date: 20130829
  Receipt Date: 20130829
  Transmission Date: 20140515
  Serious: Yes (Life-Threatening, Hospitalization)
  Sender: FDA-Public Use
  Company Number: None

PATIENT
  Age: 82 Year
  Sex: Male
  Weight: 98.8 kg

DRUGS (1)
  1. WARFARIN [Suspect]
     Indication: ATRIAL FLUTTER
     Route: 048
     Dates: start: 20050110, end: 20130826

REACTIONS (2)
  - Subdural haematoma [None]
  - Abasia [None]
